FAERS Safety Report 15722068 (Version 1)
Quarter: 2018Q4

REPORT INFORMATION
  Report Type: Spontaneous
  Country: US (occurrence: US)
  Receive Date: 20181214
  Receipt Date: 20181214
  Transmission Date: 20190205
  Serious: Yes (Other)
  Sender: FDA-Public Use
  Company Number: US-ROCHE-2229877

PATIENT
  Age: 71 Year
  Sex: Female
  Weight: 65.38 kg

DRUGS (1)
  1. KADCYLA [Suspect]
     Active Substance: ADO-TRASTUZUMAB EMTANSINE
     Indication: BREAST CANCER STAGE IV
     Dosage: DATE OF MOST RECENT DOSE OF TRASTUZUMAB EMTANSINE: 26/NOV/2018
     Route: 042
     Dates: start: 20180924

REACTIONS (1)
  - Seizure [Unknown]
